FAERS Safety Report 6996499-7 (Version None)
Quarter: 2010Q3

REPORT INFORMATION
  Report Type: 
  Country: None (occurrence: None)
  Receive Date: 20100918
  Receipt Date: 20090303
  Transmission Date: 20110219
  Serious: No
  Sender: FDA-Public Use
  Company Number: US-WYE-H08435409

PATIENT
  Age: 38 Year
  Sex: Male
  Weight: 70.37 kg

DRUGS (5)
  1. EFFEXOR [Suspect]
     Indication: DEPRESSION
     Dosage: UNKNOWN
     Route: 048
     Dates: start: 20061001
  2. AMBIEN [Concomitant]
  3. SOMA [Concomitant]
  4. LUNESTA [Suspect]
     Indication: INSOMNIA
     Route: 048
     Dates: start: 20061001, end: 20061230
  5. PREVACID [Concomitant]

REACTIONS (1)
  - DRUG SCREEN FALSE POSITIVE [None]
